FAERS Safety Report 8966817 (Version 2)
Quarter: 2013Q1

REPORT INFORMATION
  Report Type: Report from Study
  Country: US (occurrence: US)
  Receive Date: 20121214
  Receipt Date: 20130108
  Transmission Date: 20140127
  Serious: Yes (Hospitalization)
  Sender: FDA-Public Use
  Company Number: US-009507513-1212USA005124

PATIENT
  Age: 67 Year
  Sex: Female
  Weight: 61.8 kg

DRUGS (12)
  1. VORINOSTAT [Suspect]
     Indication: DIFFUSE LARGE B-CELL LYMPHOMA
     Dosage: 400 MG,PO,QD ON DAYS 1-5
     Route: 048
     Dates: start: 20121107
  2. VORINOSTAT [Suspect]
     Dosage: 400 MG,PO,QD ON DAYS 1-5 DAY 3
     Route: 048
     Dates: start: 20121128, end: 20121130
  3. RITUXIMAB [Suspect]
     Indication: DIFFUSE LARGE B-CELL LYMPHOMA
     Dosage: 375 MG/M2, IV INFUSION ON DAY 3
     Route: 042
     Dates: start: 20121109, end: 20121109
  4. RITUXIMAB [Suspect]
     Dosage: 375 MG/M2, IV INFUSION ON DAY 3
     Route: 042
     Dates: start: 20121130, end: 20121130
  5. NEUPOGEN [Concomitant]
     Dosage: UNK
     Dates: start: 20121201
  6. CYCLOPHOSPHAMIDE [Suspect]
     Indication: DIFFUSE LARGE B-CELL LYMPHOMA
     Dosage: 750 MG/M2, ONCE
     Route: 042
     Dates: start: 20121109, end: 20121109
  7. CYCLOPHOSPHAMIDE [Suspect]
     Dosage: 750 MG/M2, ONCE
     Route: 042
     Dates: start: 20121130, end: 20121130
  8. DOXORUBICIN [Suspect]
     Indication: DIFFUSE LARGE B-CELL LYMPHOMA
     Dosage: 50 MG/M2, IVP ON DAY 3
     Route: 042
     Dates: start: 20121130, end: 20121130
  9. DOXORUBICIN [Suspect]
     Dosage: 50 MG/M2, IVP ON DAY 3
     Route: 042
     Dates: start: 20121109, end: 20121109
  10. VINCRISTINE [Suspect]
     Indication: DIFFUSE LARGE B-CELL LYMPHOMA
     Dosage: 1.4 MG/M2, IVP ON DAY 3
     Route: 042
     Dates: start: 20121109, end: 20121109
  11. PREDNISONE [Suspect]
     Indication: DIFFUSE LARGE B-CELL LYMPHOMA
     Dosage: 100 MG, QD ON DAYS 3-7
     Route: 042
     Dates: start: 20121109
  12. PREDNISONE [Suspect]
     Dosage: 100 MG, QD ON DAYS 3-7
     Route: 042
     Dates: start: 20121130, end: 20121204

REACTIONS (2)
  - Febrile neutropenia [Not Recovered/Not Resolved]
  - Febrile neutropenia [Recovered/Resolved]
